FAERS Safety Report 18473725 (Version 3)
Quarter: 2021Q1

REPORT INFORMATION
  Report Type: Spontaneous
  Country: IL (occurrence: IL)
  Receive Date: 20201106
  Receipt Date: 20210128
  Transmission Date: 20210419
  Serious: Yes (Death, Other)
  Sender: FDA-Public Use
  Company Number: IL-NOVOPROD-765221

PATIENT
  Age: 75 Year
  Sex: Male

DRUGS (1)
  1. NOVORAPID [Suspect]
     Active Substance: INSULIN ASPART
     Indication: PRODUCT USED FOR UNKNOWN INDICATION
     Dosage: 55 IU, QD (15IU,14IU,12IU,14IU SEPERATE DOSES FOR 4 TIMES A DAY)
     Route: 065

REACTIONS (5)
  - Blood glucose increased [Fatal]
  - Device malfunction [Unknown]
  - Blood glucose increased [Recovered/Resolved]
  - Drug ineffective [Fatal]
  - Device issue [Unknown]

NARRATIVE: CASE EVENT DATE: 2020
